FAERS Safety Report 10025793 (Version 1)
Quarter: 2014Q1

REPORT INFORMATION
  Report Type: Spontaneous
  Country: IT (occurrence: IT)
  Receive Date: 20140320
  Receipt Date: 20140320
  Transmission Date: 20141002
  Serious: Yes (Hospitalization)
  Sender: FDA-Public Use
  Company Number: IT-GILEAD-2014-0097156

PATIENT
  Age: 59 Year
  Sex: Male
  Weight: 85 kg

DRUGS (4)
  1. VIREAD [Suspect]
     Indication: HEPATITIS
     Dosage: 1 DF, QD
     Route: 048
     Dates: start: 20131030, end: 20131113
  2. LASIX                              /00032601/ [Concomitant]
  3. KANRENOL [Concomitant]
     Dosage: 2 DF, QD
  4. PORTOLAC [Concomitant]

REACTIONS (2)
  - Myalgia [Recovered/Resolved]
  - Metabolic acidosis [Recovered/Resolved]
